FAERS Safety Report 17586565 (Version 1)
Quarter: 2020Q1

REPORT INFORMATION
  Report Type: Spontaneous
  Country: US (occurrence: US)
  Receive Date: 20200326
  Receipt Date: 20200326
  Transmission Date: 20200409
  Serious: No
  Sender: FDA-Public Use
  Company Number: US-BAYER-2020-050929

PATIENT
  Sex: Female

DRUGS (1)
  1. ALEVE [Suspect]
     Active Substance: NAPROXEN SODIUM
     Indication: DISCOMFORT
     Dosage: UNK, QD
     Route: 048

REACTIONS (1)
  - Drug effective for unapproved indication [Unknown]
